FAERS Safety Report 7528315-9 (Version None)
Quarter: 2011Q2

REPORT INFORMATION
  Report Type: 
  Country: None (occurrence: None)
  Receive Date: 20110607
  Receipt Date: 20110527
  Transmission Date: 20111010
  Serious: Yes (Other)
  Sender: FDA-Public Use
  Company Number: US-BRACCO-005584

PATIENT
  Sex: Female
  Weight: 66 kg

DRUGS (33)
  1. AMBIEN [Concomitant]
  2. MUCINEX [Concomitant]
  3. HYCODAN [Concomitant]
  4. LORCET-HD [Concomitant]
  5. PYRIDIATE [Concomitant]
  6. CONTRAST MEDIA [Suspect]
     Indication: NUCLEAR MAGNETIC RESONANCE IMAGING
     Route: 065
     Dates: start: 20060524, end: 20060524
  7. CONTRAST MEDIA [Suspect]
     Route: 065
     Dates: start: 20010420, end: 20010420
  8. CONTRAST MEDIA [Suspect]
     Route: 042
     Dates: start: 20020520, end: 20020520
  9. PROHANCE [Suspect]
     Indication: NUCLEAR MAGNETIC RESONANCE IMAGING
     Route: 065
     Dates: start: 20061020, end: 20061020
  10. CELEXA [Concomitant]
  11. MS CONTIN [Concomitant]
  12. ANTIVERT [Concomitant]
  13. XALATAN [Concomitant]
  14. PANTOPRAZOLE [Concomitant]
  15. EFFEXOR [Concomitant]
  16. DOXYCYCLINE [Concomitant]
  17. OXYCONTIN [Concomitant]
  18. PHENAZOPYRIDINE HCL TAB [Concomitant]
  19. AUGMENTIN '125' [Concomitant]
  20. COMBIVENT [Concomitant]
  21. SYMBICORT [Concomitant]
  22. MAGNEVIST [Suspect]
     Route: 065
     Dates: start: 20040709, end: 20040709
  23. BACTRIM DS [Concomitant]
  24. PROHANCE [Suspect]
     Route: 042
     Dates: start: 20030114, end: 20030114
  25. CIPROFLOXACIN HCL [Concomitant]
  26. ANTIGLAUCOMA PREPARATIONS AND MIOTICS [Concomitant]
  27. MORPHINE SULFATE [Concomitant]
  28. MAGNEVIST [Suspect]
     Indication: NUCLEAR MAGNETIC RESONANCE IMAGING
     Route: 065
  29. PERCOCET [Concomitant]
  30. SINGULAIR [Concomitant]
  31. PREDNISOLONE SODIUM SUCCINATE INJ [Concomitant]
  32. AZOPT [Concomitant]
  33. TIGAN [Concomitant]

REACTIONS (1)
  - NEPHROGENIC SYSTEMIC FIBROSIS [None]
